FAERS Safety Report 11421176 (Version 1)
Quarter: 2015Q3

REPORT INFORMATION
  Report Type: Spontaneous
  Country: US (occurrence: US)
  Receive Date: 20150826
  Receipt Date: 20150826
  Transmission Date: 20151125
  Serious: Yes (Other)
  Sender: FDA-Public Use
  Company Number: CH-ASTRAZENECA-2015SE81750

PATIENT
  Sex: Female

DRUGS (9)
  1. EXEMESTANE. [Concomitant]
     Active Substance: EXEMESTANE
     Dates: start: 201111, end: 201204
  2. EVEROLIMUS [Concomitant]
     Active Substance: EVEROLIMUS
  3. FULVERSTRANT [Suspect]
     Active Substance: FULVESTRANT
     Route: 030
     Dates: start: 201210, end: 201301
  4. ANASTRAZOLE [Concomitant]
     Active Substance: ANASTROZOLE
     Dates: start: 201206, end: 201209
  5. DOXORUBICIN [Concomitant]
     Active Substance: DOXORUBICIN
     Dates: start: 201405, end: 201408
  6. XELODA [Concomitant]
     Active Substance: CAPECITABINE
     Dates: start: 201301, end: 201304
  7. PACLITAXEL. [Concomitant]
     Active Substance: PACLITAXEL
  8. BEVACIZUMAB [Concomitant]
     Active Substance: BEVACIZUMAB
  9. GEMCITABINE [Concomitant]
     Active Substance: GEMCITABINE\GEMCITABINE HYDROCHLORIDE

REACTIONS (12)
  - Disease progression [Unknown]
  - Hypertension [Unknown]
  - Drug ineffective [Unknown]
  - Helicobacter infection [Unknown]
  - Hiatus hernia [Unknown]
  - Malaria [Unknown]
  - Breast cancer stage IV [Unknown]
  - Gastrooesophageal reflux disease [Unknown]
  - Pneumonitis [Unknown]
  - Neuropathy peripheral [Unknown]
  - Cataract [Unknown]
  - Amoebic dysentery [Unknown]
